FAERS Safety Report 6301340-1 (Version None)
Quarter: 2009Q3

REPORT INFORMATION
  Report Type: 
  Country: None (occurrence: None)
  Receive Date: 20090807
  Receipt Date: 20090728
  Transmission Date: 20100115
  Serious: Yes (Hospitalization)
  Sender: FDA-Public Use
  Company Number: US-PFIZER INC-2009183229

PATIENT
  Sex: Male

DRUGS (1)
  1. SUTENT [Suspect]
     Indication: RENAL CELL CARCINOMA
     Dosage: 50 MG, 1X/DAY, 4 WEEKS
     Route: 048
     Dates: start: 20090101, end: 20090217

REACTIONS (9)
  - AZOTAEMIA [None]
  - CHILLS [None]
  - DEHYDRATION [None]
  - DISEASE PROGRESSION [None]
  - FLANK PAIN [None]
  - FLUID RETENTION [None]
  - PLEURAL EFFUSION [None]
  - PYREXIA [None]
  - RENAL CELL CARCINOMA [None]
